FAERS Safety Report 4695773-7 (Version None)
Quarter: 2005Q2

REPORT INFORMATION
  Report Type: 
  Country: None (occurrence: None)
  Receive Date: 20050620
  Receipt Date: 20050620
  Transmission Date: 20051028
  Serious: Yes (Disabling)
  Sender: FDA-Public Use
  Company Number: None

PATIENT
  Sex: Male
  Weight: 120.2032 kg

DRUGS (8)
  1. VIAGRA [Suspect]
     Indication: ERECTILE DYSFUNCTION
     Dosage: 100 MG,  2-3 TABS/MO
     Dates: end: 20031101
  2. LISINOPRIL [Concomitant]
  3. CLARITIN [Concomitant]
  4. GLIPIZIDE [Concomitant]
  5. METFORMIN HCL [Concomitant]
  6. INSULIN GLARGINE [Concomitant]
  7. MULTI-VITAMINS [Concomitant]
  8. GLUCOSAMINE CHONDROITIN [Concomitant]

REACTIONS (4)
  - EYE HAEMORRHAGE [None]
  - RETINAL VEIN OCCLUSION [None]
  - VISION BLURRED [None]
  - VISUAL ACUITY REDUCED [None]
